FAERS Safety Report 25655506 (Version 1)
Quarter: 2025Q3

REPORT INFORMATION
  Report Type: Spontaneous
  Country: US (occurrence: US)
  Receive Date: 20250807
  Receipt Date: 20250807
  Transmission Date: 20251020
  Serious: No
  Sender: MERCK SHARP & DOHME LLC
  Company Number: US-009507513-2310855

PATIENT
  Age: 69 Year
  Sex: Male

DRUGS (2)
  1. BELZUTIFAN [Suspect]
     Active Substance: BELZUTIFAN
     Indication: Renal cancer
     Dosage: 40MG - TAKE 2 TABLETS
     Route: 065
  2. CABOMETYX [Concomitant]
     Active Substance: CABOZANTINIB S-MALATE
     Indication: Renal cancer
     Route: 048

REACTIONS (1)
  - Incorrect dose administered [Unknown]
